FAERS Safety Report 8062785-5 (Version None)
Quarter: 2012Q1

REPORT INFORMATION
  Report Type: 
  Country: None (occurrence: None)
  Receive Date: 20120123
  Receipt Date: 20120111
  Transmission Date: 20120608
  Serious: Yes (Other)
  Sender: FDA-Public Use
  Company Number: US-ELI_LILLY_AND_COMPANY-US201201003908

PATIENT
  Age: 62 Year
  Sex: Male

DRUGS (2)
  1. ZYPREXA [Suspect]
     Dosage: 10 MG, EACH EVENING
  2. ZYPREXA [Suspect]
     Dosage: 5 MG, EACH EVENING

REACTIONS (2)
  - LEUKAEMIA [None]
  - INTENTIONAL DRUG MISUSE [None]
